FAERS Safety Report 4734575-X (Version None)
Quarter: 2005Q3

REPORT INFORMATION
  Report Type: 
  Country: None (occurrence: None)
  Receive Date: 20050729
  Receipt Date: 20050716
  Transmission Date: 20060218
  Serious: Yes (Other)
  Sender: FDA-Public Use
  Company Number: 220012M05USA

PATIENT
  Sex: Male

DRUGS (1)
  1. SAIZEN [Suspect]
     Indication: GROWTH HORMONE DEFICIENCY
     Dosage: SUBCUTANEOUSLY
     Route: 058

REACTIONS (3)
  - DRUG ADMINISTRATION ERROR [None]
  - EXPOSURE TO COMMUNICABLE DISEASE [None]
  - MEDICATION ERROR [None]
